FAERS Safety Report 15418672 (Version 2)
Quarter: 2018Q3

REPORT INFORMATION
  Report Type: Spontaneous
  Country: GB (occurrence: GB)
  Receive Date: 20180924
  Receipt Date: 20180924
  Transmission Date: 20181010
  Serious: Yes (Other)
  Sender: FDA-Public Use
  Company Number: PHHY2018GB101623

PATIENT
  Age: 58 Year
  Sex: Male

DRUGS (1)
  1. PREDNISOLONE. [Suspect]
     Active Substance: PREDNISOLONE
     Indication: METASTATIC CUTANEOUS CROHN^S DISEASE
     Dosage: 0.5 MG/KG, QD
     Route: 065

REACTIONS (3)
  - Osteoporotic fracture [Unknown]
  - Osteoporosis [Unknown]
  - Lumbar vertebral fracture [Unknown]
